FAERS Safety Report 9734431 (Version 3)
Quarter: 2014Q2

REPORT INFORMATION
  Report Type: Spontaneous
  Country: US (occurrence: US)
  Receive Date: 20131206
  Receipt Date: 20140509
  Transmission Date: 20141212
  Serious: Yes (Hospitalization, Other)
  Sender: FDA-Public Use
  Company Number: US-BEH-2013034533

PATIENT
  Age: 56 Year
  Sex: Male

DRUGS (6)
  1. HIZENTRA [Suspect]
     Indication: IMMUNODEFICIENCY COMMON VARIABLE
     Dosage: STARTING JUL-2013
     Route: 058
  2. HIZENTRA [Suspect]
     Indication: HYPOGAMMAGLOBULINAEMIA
     Route: 042
  3. GAMMAGARD [Suspect]
     Route: 042
  4. VITAMIN B12 [Concomitant]
     Route: 030
  5. DURAGESIC [Concomitant]
     Dosage: 25-50 MCG
     Route: 062
  6. XANAX [Concomitant]
     Route: 048

REACTIONS (7)
  - Chronic inflammatory demyelinating polyradiculoneuropathy [Unknown]
  - Pyrexia [Recovered/Resolved]
  - Gastroenteritis viral [Recovered/Resolved]
  - Gastroenteritis [Recovered/Resolved]
  - Neuropathy peripheral [Unknown]
  - Blister [Unknown]
  - Chest discomfort [Unknown]
